FAERS Safety Report 5759968-3 (Version None)
Quarter: 2008Q2

REPORT INFORMATION
  Report Type: 
  Country: None (occurrence: None)
  Receive Date: 20080605
  Receipt Date: 20080523
  Transmission Date: 20081010
  Serious: Yes (Hospitalization)
  Sender: FDA-Public Use
  Company Number: US-BAYER-200824264NA

PATIENT
  Age: 49 Year
  Sex: Female

DRUGS (1)
  1. ULTRAVIST-300, SOC TREATMENT GROUP, STUDY MED NOT GIVEN [Suspect]

REACTIONS (2)
  - ACCELERATED IDIOVENTRICULAR RHYTHM [None]
  - VENTRICULAR TACHYCARDIA [None]
